FAERS Safety Report 8927809 (Version 1)
Quarter: 2012Q4

REPORT INFORMATION
  Report Type: 
  Country: US (occurrence: US)
  Receive Date: 20121127
  Receipt Date: 20121127
  Transmission Date: 20130627
  Serious: No
  Sender: FDA-Public Use
  Company Number: US-BAYER-2012-123579

PATIENT
  Age: 76 Year
  Sex: Female
  Weight: 77 kg

DRUGS (4)
  1. ALEVE CAPLET/TABLET,MIDOL EXTENDED RELIEF CAPLET [Suspect]
     Indication: PAIN RELIEF
     Dosage: 1 DF, TID
     Route: 048
     Dates: start: 201207
  2. ALEVE CAPLET/TABLET,MIDOL EXTENDED RELIEF CAPLET [Suspect]
     Indication: PAIN
     Dosage: 1 DF, TID
     Route: 048
     Dates: start: 20121112
  3. COLLINSONIA CANADENSIS (STONE ROOT) [Concomitant]
  4. VITAMINS [Concomitant]

REACTIONS (3)
  - Drug ineffective [Recovered/Resolved]
  - Incorrect drug administration duration [Not Recovered/Not Resolved]
  - Drug ineffective [None]
